FAERS Safety Report 8337563-X (Version None)
Quarter: 2012Q2

REPORT INFORMATION
  Report Type: 
  Country: None (occurrence: None)
  Receive Date: 20120504
  Receipt Date: 20120426
  Transmission Date: 20120825
  Serious: Yes (Other)
  Sender: FDA-Public Use
  Company Number: JP-ROCHE-1037494

PATIENT
  Sex: Female
  Weight: 74 kg

DRUGS (15)
  1. DOXAZOSIN MESYLATE [Concomitant]
     Indication: HYPERTENSION
     Route: 048
  2. FERROUS SULFATE TAB [Concomitant]
     Indication: IRON DEFICIENCY ANAEMIA
     Route: 048
     Dates: start: 20120116
  3. CALCIUM CARBONATE [Concomitant]
     Indication: HYPERLIPIDAEMIA
     Route: 048
  4. HUMALOG [Concomitant]
     Indication: DIABETES MELLITUS
     Route: 058
  5. DIOVAN [Concomitant]
     Indication: HYPERTENSION
     Route: 048
  6. NOVOLIN N [Concomitant]
     Indication: DIABETES MELLITUS
     Route: 058
  7. MIRCERA [Suspect]
     Route: 058
     Dates: start: 20120117
  8. LASIX [Concomitant]
     Indication: OEDEMA
     Route: 048
  9. ACECOL [Concomitant]
     Indication: HYPERTENSION
     Route: 048
  10. TRICHLORMETHIAZIDE [Concomitant]
     Indication: HYPERTENSION
     Route: 048
  11. MIRCERA [Suspect]
     Indication: NEPHROGENIC ANAEMIA
     Dosage: DOSAGE IS UNCERTAIN.
     Route: 058
     Dates: start: 20111104, end: 20111202
  12. LANSOPRAZOLE [Concomitant]
     Indication: GASTRITIS
     Route: 048
  13. LIPITOR [Concomitant]
     Indication: HYPERLIPIDAEMIA
     Route: 048
  14. ALLOPURINOL [Concomitant]
     Indication: HYPERURICAEMIA
     Route: 048
  15. AMLODIPINE [Concomitant]
     Indication: HYPERTENSION
     Route: 048

REACTIONS (1)
  - ANAEMIA [None]
